FAERS Safety Report 5690881-6 (Version None)
Quarter: 2008Q2

REPORT INFORMATION
  Report Type: 
  Country: None (occurrence: None)
  Receive Date: 20080401
  Receipt Date: 20080320
  Transmission Date: 20081010
  Serious: Yes (Hospitalization)
  Sender: FDA-Public Use
  Company Number: US-KINGPHARMUSA00001-K200800343

PATIENT

DRUGS (16)
  1. SKELAXIN [Suspect]
     Dosage: 800 MG, TID
     Route: 048
     Dates: end: 20070601
  2. AMBIEN [Suspect]
     Indication: INSOMNIA
     Dosage: 12.5 MG, UNK
     Route: 048
     Dates: start: 20070201, end: 20070611
  3. TRAZODONE HCL [Suspect]
     Indication: SLEEP DISORDER
     Dosage: 100 MG, QHS
     Route: 048
     Dates: end: 20070611
  4. LAMICTAL [Suspect]
     Indication: SLEEP DISORDER
     Dosage: 200 MG, QD
     Route: 048
  5. TYLENOL W/ CODEINE [Suspect]
     Dosage: 1 TAB., QID
     Route: 048
     Dates: end: 20070601
  6. ABILIFY [Suspect]
     Dosage: 30 MG, QD
     Route: 048
  7. LYRICA [Suspect]
     Route: 048
     Dates: end: 20070601
  8. ROXICET [Suspect]
     Dosage: 325/5 MG , 2 TABLET EVERY 6 HOURS
     Route: 048
     Dates: end: 20070601
  9. ROZEREM [Suspect]
     Dates: end: 20070601
  10. TEMAZEPAM [Suspect]
     Dates: end: 20070601
  11. LIPITOR [Concomitant]
     Dosage: 40 MG, HS
     Route: 048
  12. PROVIGIL [Concomitant]
     Dosage: 200 MG, QD
     Route: 048
     Dates: end: 20070601
  13. PANTOPRAZOLE SODIUM [Concomitant]
     Dosage: 40 MG, QD
     Route: 048
  14. LEVOTHYROXINE SODIUM [Concomitant]
     Dosage: .05 MG, UNK
     Route: 048
  15. LITHIUM [Concomitant]
     Dosage: 300 MG, QD
     Route: 048
  16. TIZANIDINE HYDROCHLORIDE [Concomitant]
     Indication: SCIATICA
     Dosage: UNK, UNK
     Route: 048

REACTIONS (27)
  - ACIDOSIS [None]
  - AMNESIA [None]
  - ATELECTASIS [None]
  - BLOOD LACTIC ACID INCREASED [None]
  - BRADYCARDIA [None]
  - BRONCHOSPASM [None]
  - DIPLOPIA [None]
  - DIZZINESS [None]
  - DRUG INTERACTION [None]
  - DYSARTHRIA [None]
  - EATING DISORDER [None]
  - FATIGUE [None]
  - HYPOKALAEMIA [None]
  - HYPOXIA [None]
  - LOSS OF CONSCIOUSNESS [None]
  - MENTAL STATUS CHANGES [None]
  - NAUSEA [None]
  - OXYGEN SATURATION DECREASED [None]
  - PNEUMONIA ASPIRATION [None]
  - RESPIRATORY DEPRESSION [None]
  - SLUGGISHNESS [None]
  - SOMNAMBULISM [None]
  - SOMNOLENCE [None]
  - SYNCOPE [None]
  - VERTIGO [None]
  - VOMITING [None]
  - WHITE BLOOD CELL COUNT INCREASED [None]
